FAERS Safety Report 5021749-6 (Version None)
Quarter: 2006Q2

REPORT INFORMATION
  Report Type: 
  Country: None (occurrence: None)
  Receive Date: 20060605
  Receipt Date: 20060523
  Transmission Date: 20061013
  Serious: Yes (Hospitalization)
  Sender: FDA-Public Use
  Company Number: COT_0501_2006

PATIENT
  Age: 34 Year
  Sex: Female
  Weight: 94 kg

DRUGS (14)
  1. VENTAVIS [Suspect]
     Indication: PULMONARY HYPERTENSION
     Dosage: 5 MCG 6XD IH
     Route: 055
     Dates: start: 20060417, end: 20060511
  2. COZAAR [Concomitant]
  3. LASIX [Concomitant]
  4. CALAN [Concomitant]
  5. CLARITIN [Concomitant]
  6. IBUPROFEN [Concomitant]
  7. MIDRIN [Concomitant]
  8. NEXIUM [Concomitant]
  9. K-DUR 10 [Concomitant]
  10. PROZAC [Concomitant]
  11. FLONASE [Concomitant]
  12. SYNTHROID [Concomitant]
  13. OXYGEN [Concomitant]
  14. SILDENAFIL CITRATE [Concomitant]

REACTIONS (1)
  - POSTURAL ORTHOSTATIC TACHYCARDIA SYNDROME [None]
